FAERS Safety Report 20205690 (Version 1)
Quarter: 2021Q4

REPORT INFORMATION
  Report Type: Spontaneous
  Country: US (occurrence: US)
  Receive Date: 20211220
  Receipt Date: 20211220
  Transmission Date: 20220304
  Serious: No
  Sender: FDA-Public Use
  Company Number: US-JNJFOC-20211214767

PATIENT
  Age: 59 Year
  Sex: Female

DRUGS (1)
  1. WOMENS ROGAINE UNSCENTED [Suspect]
     Active Substance: MINOXIDIL
     Indication: Alopecia
     Dosage: APPLIED PRODUCT TO SCALP ONCE A DAY
     Route: 061
     Dates: start: 20210808

REACTIONS (1)
  - Drug ineffective [Unknown]
